FAERS Safety Report 9268395 (Version 2)
Quarter: 2013Q2

REPORT INFORMATION
  Report Type: Spontaneous
  Country: ES (occurrence: ES)
  Receive Date: 20130502
  Receipt Date: 20130516
  Transmission Date: 20140414
  Serious: Yes (Hospitalization, Disabling, Other)
  Sender: FDA-Public Use
  Company Number: ES-009507513-1304ESP016552

PATIENT
  Age: 56 Year
  Sex: Female
  Weight: 54.5 kg

DRUGS (10)
  1. VICTRELIS [Suspect]
     Indication: HEPATITIS C
     Dosage: 800 MG, Q8H
     Route: 048
     Dates: start: 20120229, end: 20120920
  2. VICTRELIS [Suspect]
     Indication: HEPATIC FIBROSIS
  3. COPEGUS [Suspect]
     Indication: HEPATITIS C
     Dosage: 600 MG IN THE MORNING AND 400 MG AT NIGHT
     Dates: start: 20120126, end: 20120229
  4. COPEGUS [Suspect]
     Indication: HEPATIC FIBROSIS
     Dosage: 200 MG IN THE MORNING AND 400 MG IN NIGHT
     Dates: start: 20120229, end: 20120308
  5. COPEGUS [Suspect]
     Dosage: 200 MG, Q12H
     Dates: start: 20120308, end: 20120409
  6. COPEGUS [Suspect]
     Dosage: 200 MG IN THE MORNING AND 400 MG IN THE NIGHT
     Dates: start: 20120409, end: 20120522
  7. COPEGUS [Suspect]
     Dosage: 200 MG IN THE MORNING AND 400 MG IN THE NIGHT
     Dates: start: 20120525, end: 20120920
  8. PEGASYS [Suspect]
     Indication: HEPATITIS C
     Dosage: 180 MICROGRAM, QW
     Dates: start: 20120126, end: 201203
  9. PEGASYS [Suspect]
     Indication: HEPATIC FIBROSIS
     Dosage: 180 MICROGRAM, QW
     Dates: start: 201203, end: 20120808
  10. PEGASYS [Suspect]
     Dosage: 135 MICROGRAM, QW
     Dates: start: 20120808, end: 20120920

REACTIONS (39)
  - Polymyositis [Recovering/Resolving]
  - Musculoskeletal chest pain [Recovered/Resolved]
  - Blindness transient [Recovered/Resolved]
  - Asthenia [Recovering/Resolving]
  - Anaemia [Recovering/Resolving]
  - Pyrexia [Recovered/Resolved]
  - Eye irritation [Recovered/Resolved]
  - Nausea [Recovered/Resolved]
  - Nasopharyngitis [Recovered/Resolved]
  - Dyspnoea exertional [Recovered/Resolved]
  - Irritability [Recovered/Resolved]
  - Abdominal discomfort [Recovered/Resolved]
  - Pyrexia [Recovered/Resolved]
  - Oral disorder [Recovered/Resolved]
  - Macule [Recovered/Resolved]
  - Dysgeusia [Recovered/Resolved]
  - Abdominal pain upper [Recovered/Resolved]
  - Diarrhoea [Recovered/Resolved]
  - Weight decreased [Recovering/Resolving]
  - Nervousness [Recovered/Resolved]
  - Hyperhidrosis [Recovered/Resolved]
  - White blood cell count decreased [Recovering/Resolving]
  - Neutrophil count decreased [Recovering/Resolving]
  - Platelet count decreased [Recovering/Resolving]
  - Nausea [Recovered/Resolved]
  - Vomiting [Recovered/Resolved]
  - Toxic skin eruption [Recovered/Resolved]
  - Seborrhoeic keratosis [Recovered/Resolved]
  - Conjunctivitis [Recovered/Resolved]
  - Alopecia [Recovered/Resolved]
  - Lymphadenopathy [Unknown]
  - Lymphadenopathy [Unknown]
  - Hepatomegaly [Not Recovered/Not Resolved]
  - Diverticulum [Unknown]
  - Oesophageal hypomotility [Unknown]
  - Spinal muscular atrophy [Unknown]
  - Blood immunoglobulin G increased [Unknown]
  - Osteoporosis [Not Recovered/Not Resolved]
  - Neutrophil count decreased [Recovering/Resolving]
